FAERS Safety Report 25151223 (Version 1)
Quarter: 2025Q2

REPORT INFORMATION
  Report Type: Spontaneous
  Country: US (occurrence: None)
  Receive Date: 20250402
  Receipt Date: 20250402
  Transmission Date: 20250716
  Serious: Yes (Death)
  Sender: FDA-CTU
  Company Number: None

PATIENT
  Age: 79 Year
  Sex: Female

DRUGS (1)
  1. ESBRIET [Suspect]
     Active Substance: PIRFENIDONE
     Indication: Idiopathic pulmonary fibrosis
     Dosage: FREQUENCY : 3 TIMES A DAY;?
     Route: 048
     Dates: start: 20210920, end: 20250217

REACTIONS (6)
  - Acute respiratory failure [None]
  - Hyponatraemia [None]
  - Pneumonia [None]
  - Chronic obstructive pulmonary disease [None]
  - Anxiety [None]
  - White blood cell count decreased [None]

NARRATIVE: CASE EVENT DATE: 20250217
